FAERS Safety Report 8528694-X (Version None)
Quarter: 2012Q3

REPORT INFORMATION
  Report Type: 
  Country: None (occurrence: None)
  Receive Date: 20120723
  Receipt Date: 20120710
  Transmission Date: 20120928
  Serious: No
  Sender: FDA-Public Use
  Company Number: US-BIOGENIDEC-2012BI024786

PATIENT
  Age: 23 Year
  Sex: Male

DRUGS (2)
  1. AVONEX [Suspect]
     Indication: MULTIPLE SCLEROSIS
     Route: 030
     Dates: start: 20110707, end: 20111015
  2. AVONEX [Suspect]
     Route: 030
     Dates: start: 20120711

REACTIONS (1)
  - ADVERSE REACTION [None]
